FAERS Safety Report 14951390 (Version 2)
Quarter: 2018Q4

REPORT INFORMATION
  Report Type: Spontaneous
  Country: HU (occurrence: HU)
  Receive Date: 20180530
  Receipt Date: 20181011
  Transmission Date: 20190204
  Serious: Yes (Hospitalization, Other)
  Sender: FDA-Public Use
  Company Number: HU-MYLANLABS-2018M1033989

PATIENT
  Sex: Male

DRUGS (10)
  1. DIAPHYLLIN [Suspect]
     Active Substance: AMINOPHYLLINE
     Indication: ASTHMA
  2. FLUTICASONE. [Suspect]
     Active Substance: FLUTICASONE
     Indication: COUGH
     Dosage: UNK
     Route: 065
  3. BUDESONIDE W/FORMOTEROL [Suspect]
     Active Substance: BUDESONIDE\FORMOTEROL
     Indication: ASTHMA
     Dosage: UNK
     Route: 055
  4. FLUTICASONE PROPIONAT1 E/SALMETEROL XINAFOATE [Suspect]
     Active Substance: FLUTICASONE PROPIONATE\SALMETEROL XINAFOATE
     Indication: ASTHMA
  5. MONTELUKAST [Suspect]
     Active Substance: MONTELUKAST SODIUM
     Indication: ASTHMA
  6. BUDESONIDE W/FORMOTEROL [Suspect]
     Active Substance: BUDESONIDE\FORMOTEROL
     Indication: COUGH
     Dosage: UNK
     Route: 065
  7. FLUTICASONE PROPIONATE1 /SALMETEROL XINAFOATE [Suspect]
     Active Substance: FLUTICASONE PROPIONATE\SALMETEROL XINAFOATE
     Indication: COUGH
     Dosage: UNK
     Route: 065
  8. DIAPHYLLIN [Suspect]
     Active Substance: AMINOPHYLLINE
     Indication: COUGH
     Dosage: UNK
     Route: 065
  9. MONTELUKAST [Suspect]
     Active Substance: MONTELUKAST SODIUM
     Indication: COUGH
     Dosage: UNK
     Route: 065
  10. FLUTICASONE. [Suspect]
     Active Substance: FLUTICASONE
     Indication: ASTHMA

REACTIONS (3)
  - Eosinophilic granulomatosis with polyangiitis [Unknown]
  - Drug ineffective [Unknown]
  - Therapeutic response decreased [Unknown]
